FAERS Safety Report 17512105 (Version 1)
Quarter: 2020Q1

REPORT INFORMATION
  Report Type: Spontaneous
  Country: US (occurrence: US)
  Receive Date: 20200307
  Receipt Date: 20200307
  Transmission Date: 20200409
  Serious: No
  Sender: FDA-Public Use
  Company Number: US-TEVA-2020-US-1192805

PATIENT
  Age: 59 Year
  Sex: Female

DRUGS (1)
  1. BUPROPION EXTENDED RELEASE XL TEVA [Suspect]
     Active Substance: BUPROPION
     Indication: MENOPAUSAL SYMPTOMS
     Dosage: EXTENDED-RELEASE TABLETS (XL)
     Route: 065

REACTIONS (3)
  - Irritability [Not Recovered/Not Resolved]
  - Hyperhidrosis [Not Recovered/Not Resolved]
  - Therapeutic product effect incomplete [Unknown]
